FAERS Safety Report 13689189 (Version 1)
Quarter: 2017Q2

REPORT INFORMATION
  Report Type: Spontaneous
  Country: US (occurrence: US)
  Receive Date: 20170623
  Receipt Date: 20170623
  Transmission Date: 20170830
  Serious: Yes (Death)
  Sender: FDA-Public Use
  Company Number: None

PATIENT
  Age: 78 Year
  Sex: Male

DRUGS (4)
  1. XOFIGO [Concomitant]
     Active Substance: RADIUM RA-223 DICHLORIDE
  2. ZOLEDRONIC ACID 4MG/5ML SDV PAR STERILE [Suspect]
     Active Substance: ZOLEDRONIC ACID
     Indication: PROSTATE CANCER
     Dosage: 4MG Q 8 WEEKS IV
     Route: 042
     Dates: start: 20160223, end: 20170423
  3. ZOMETA [Concomitant]
     Active Substance: ZOLEDRONIC ACID
  4. LUPRON DEPOT [Suspect]
     Active Substance: LEUPROLIDE ACETATE
     Indication: PROSTATE CANCER
     Dosage: 22.5MG Q 3 MONTHS IM
     Route: 030
     Dates: start: 20090129, end: 20170423

REACTIONS (1)
  - Death [None]

NARRATIVE: CASE EVENT DATE: 20170423
